FAERS Safety Report 23043428 (Version 2)
Quarter: 2025Q2

REPORT INFORMATION
  Report Type: Spontaneous
  Country: US (occurrence: US)
  Receive Date: 20231009
  Receipt Date: 20250403
  Transmission Date: 20250717
  Serious: Yes (Disabling, Other)
  Sender: CHATTEM
  Company Number: US-OPELLA-2023OHG009800

PATIENT
  Age: 72 Year
  Sex: Male

DRUGS (2)
  1. ALLEGRA D-12 HOUR [Suspect]
     Active Substance: FEXOFENADINE HYDROCHLORIDE\PSEUDOEPHEDRINE HYDROCHLORIDE
     Indication: Hypersensitivity
     Route: 065
     Dates: start: 20220927
  2. BUPROPION HYDROCHLORIDE (HCL) [Concomitant]
     Indication: Hypertension

REACTIONS (3)
  - Blindness unilateral [Unknown]
  - Emotional distress [Unknown]
  - Contraindicated product administered [Unknown]
